FAERS Safety Report 21193852 (Version 2)
Quarter: 2022Q4

REPORT INFORMATION
  Report Type: Report from Study
  Country: US (occurrence: US)
  Receive Date: 20220810
  Receipt Date: 20221025
  Transmission Date: 20230113
  Serious: Yes (Other)
  Sender: FDA-Public Use
  Company Number: US-ABBVIE-22K-163-4496000-00

PATIENT
  Sex: Female

DRUGS (3)
  1. HUMIRA [Suspect]
     Active Substance: ADALIMUMAB
     Indication: Rheumatoid arthritis
     Route: 058
     Dates: end: 2022
  2. HUMIRA [Suspect]
     Active Substance: ADALIMUMAB
     Route: 058
     Dates: start: 2022
  3. AZATHIOPRINE [Concomitant]
     Active Substance: AZATHIOPRINE
     Indication: Product used for unknown indication

REACTIONS (4)
  - Hypertrophic cardiomyopathy [Unknown]
  - Systemic lupus erythematosus [Not Recovered/Not Resolved]
  - Dental care [Recovering/Resolving]
  - Pericarditis [Unknown]

NARRATIVE: CASE EVENT DATE: 20220101
